FAERS Safety Report 15005497 (Version 1)
Quarter: 2018Q2

REPORT INFORMATION
  Report Type: Spontaneous
  Country: ZA (occurrence: ZA)
  Receive Date: 20180613
  Receipt Date: 20180613
  Transmission Date: 20180711
  Serious: Yes (Hospitalization, Other)
  Sender: FDA-Public Use
  Company Number: IND-ZA-009507513-1806ZAF002425

PATIENT
  Age: 69 Year
  Sex: Female

DRUGS (9)
  1. PURATA [Suspect]
     Active Substance: OXAZEPAM
     Dosage: 30 MG, UNK
  2. LIPANTHYL [Suspect]
     Active Substance: FENOFIBRATE
     Dosage: 200 MG, UNK
  3. TESAR [Suspect]
     Active Substance: TELMISARTAN
     Dosage: 80 MG, UNK
  4. ECOTRIN [Suspect]
     Active Substance: ASPIRIN
     Dosage: 81 MG, UNK
  5. EXINEF [Suspect]
     Active Substance: ETORICOXIB
     Dosage: 90 MG, UNK
     Route: 048
  6. ASPAVOR [Suspect]
     Active Substance: ATORVASTATIN
     Dosage: 40 MG, UNK
  7. AMILORETIC [Suspect]
     Active Substance: AMILORIDE HYDROCHLORIDE\HYDROCHLOROTHIAZIDE
     Dosage: 5/50 MG, UNK
  8. GLUCOPHAGE [Suspect]
     Active Substance: METFORMIN HYDROCHLORIDE
     Dosage: 750 MG, UNK
  9. TREPILINE [Suspect]
     Active Substance: AMITRIPTYLINE
     Dosage: 25 MG, UNK

REACTIONS (2)
  - Dehydration [Recovering/Resolving]
  - Renal failure [Recovering/Resolving]

NARRATIVE: CASE EVENT DATE: 2018
